FAERS Safety Report 25578583 (Version 2)
Quarter: 2025Q3

REPORT INFORMATION
  Report Type: Spontaneous
  Country: US (occurrence: US)
  Receive Date: 20250718
  Receipt Date: 20250901
  Transmission Date: 20251021
  Serious: No
  Sender: DR REDDYS
  Company Number: US-DRL-USA-USA/2025/07/010107

PATIENT
  Age: 53 Year
  Sex: Female
  Weight: 63 kg

DRUGS (1)
  1. CIPROFLOXACIN\DEXAMETHASONE [Suspect]
     Active Substance: CIPROFLOXACIN\DEXAMETHASONE
     Indication: Ear infection
     Dosage: 7.5 ML, 4 DROPS INTO RIGHT EAR TWO TIMES A DAY AND SHAKE THE BOTTLE BEFORE USING IT
     Route: 001

REACTIONS (1)
  - Drug ineffective [Not Recovered/Not Resolved]
